FAERS Safety Report 10831565 (Version 1)
Quarter: 2015Q1

REPORT INFORMATION
  Report Type: Report from Study
  Country: US (occurrence: US)
  Receive Date: 20150219
  Receipt Date: 20150219
  Transmission Date: 20150721
  Serious: No
  Sender: FDA-Public Use
  Company Number: US-ABBVIE-14P-163-1194227-00

PATIENT
  Age: 60 Year
  Sex: Female

DRUGS (5)
  1. PLAQUENIL [Concomitant]
     Active Substance: HYDROXYCHLOROQUINE SULFATE
     Indication: AUTOIMMUNE DISORDER
     Route: 048
  2. HUMIRA [Suspect]
     Active Substance: ADALIMUMAB
     Indication: COLITIS ULCERATIVE
     Dates: start: 201308
  3. PREDNISONE. [Concomitant]
     Active Substance: PREDNISONE
     Indication: AUTOIMMUNE DISORDER
     Route: 048
  4. DEXILANT [Concomitant]
     Active Substance: DEXLANSOPRAZOLE
     Indication: COLITIS ULCERATIVE
     Route: 048
  5. DELZICOL [Concomitant]
     Active Substance: MESALAMINE
     Indication: COLITIS ULCERATIVE
     Route: 048

REACTIONS (8)
  - Nasopharyngitis [Unknown]
  - Malaise [Unknown]
  - Nasopharyngitis [Recovering/Resolving]
  - Lower respiratory tract infection [Recovering/Resolving]
  - Fatigue [Recovering/Resolving]
  - Nasal congestion [Recovering/Resolving]
  - Pyrexia [Recovering/Resolving]
  - Headache [Recovering/Resolving]

NARRATIVE: CASE EVENT DATE: 20140110
